FAERS Safety Report 12908747 (Version 1)
Quarter: 2016Q4

REPORT INFORMATION
  Report Type: Spontaneous
  Country: JP (occurrence: JP)
  Receive Date: 20161103
  Receipt Date: 20161103
  Transmission Date: 20170207
  Serious: Yes (Death, Hospitalization, Other)
  Sender: FDA-Public Use
  Company Number: JP-009507513-1610JPN016925

PATIENT
  Age: 67 Year
  Sex: Female

DRUGS (3)
  1. LENDORMIN [Concomitant]
     Active Substance: BROTIZOLAM
     Dosage: DAILY DOSE UNKNOWN
     Route: 048
  2. REMERON [Suspect]
     Active Substance: MIRTAZAPINE
     Dosage: 30 MG, QD
     Route: 048
  3. AMOBAN [Concomitant]
     Active Substance: ZOPICLONE
     Dosage: DAILY DOSAGE UNKNOWN
     Route: 048

REACTIONS (6)
  - Pulmonary artery thrombosis [Fatal]
  - Adverse event [Unknown]
  - Insomnia [Unknown]
  - Subdural haematoma [Unknown]
  - Fall [Unknown]
  - Restlessness [Unknown]
